FAERS Safety Report 8841848 (Version 1)
Quarter: 2012Q4

REPORT INFORMATION
  Report Type: 
  Country: FR (occurrence: FR)
  Receive Date: 20121016
  Receipt Date: 20121016
  Transmission Date: 20130627
  Serious: Yes (Hospitalization)
  Sender: FDA-Public Use
  Company Number: FR-TEVA-363049ISR

PATIENT
  Age: 79 Year
  Sex: Male
  Weight: 65 kg

DRUGS (13)
  1. METHOTREXATE TEVA 10% (5 G/50 ML), SOLUTION INJECTABLE [Suspect]
     Dosage: 1 Dosage forms Daily; 2650 mg, 3500 MG/M2 IV OVER 2 HOURS
     Route: 041
     Dates: start: 20120308, end: 20120308
  2. ONCOVIN 1 MG, SOLUTION INJECTABLE NOT TEVA [Suspect]
     Dosage: 1 Dosage forms Daily; 1 mg
     Route: 042
     Dates: start: 20120308
  3. NATULAN 50 MG, GELULE NOT TEVA [Suspect]
     Indication: CENTRAL NERVOUS SYSTEM LYMPHOMA
     Dosage: 1 Dosage forms Daily; 175 mg
     Route: 048
     Dates: start: 20120308
  4. CALCIUM LEVOFOLINATE [Concomitant]
     Dosage: 1 Dosage forms Daily; 100 mg/DAY
     Route: 042
     Dates: start: 20120309, end: 20120311
  5. ONDANSETRON [Concomitant]
     Dosage: 1 Dosage forms Daily; 8 mg
     Route: 042
     Dates: start: 20120308
  6. METHYLPREDNISOLONE [Concomitant]
     Dosage: 1 Dosage forms Daily; 30 mg
     Route: 042
     Dates: start: 20120308
  7. METHYLPREDNISOLONE [Concomitant]
     Route: 042
  8. KARDEGIC 75 MG [Concomitant]
     Dosage: 1 Dosage forms Daily; 75 mg
     Route: 048
     Dates: start: 20120301
  9. EUPANTOL [Concomitant]
     Dosage: 1 Dosage forms Daily; 20 mg
     Route: 048
     Dates: start: 20120301
  10. ZYLORIC 100 MG, COMPRIME [Concomitant]
     Dosage: 1 Dosage forms Daily; 100 mg
     Route: 048
     Dates: start: 20120301
  11. IMOVANE [Concomitant]
     Dosage: 7.5 Milligram Daily;
     Route: 048
     Dates: start: 20120301
  12. DIFFU-K [Concomitant]
     Dates: start: 20120301
  13. TIMOPTOL 0.5% [Concomitant]
     Route: 047
     Dates: start: 20120301

REACTIONS (1)
  - Hepatitis [Recovered/Resolved]
